FAERS Safety Report 11941222 (Version 2)
Quarter: 2016Q2

REPORT INFORMATION
  Report Type: Spontaneous
  Country: IE (occurrence: IE)
  Receive Date: 20160122
  Receipt Date: 20160627
  Transmission Date: 20160815
  Serious: Yes (Hospitalization, Other)
  Sender: FDA-Public Use
  Company Number: IE-BIOGEN-2015BI078404

PATIENT
  Sex: Male
  Weight: 88 kg

DRUGS (1)
  1. TYSABRI [Suspect]
     Active Substance: NATALIZUMAB
     Indication: MULTIPLE SCLEROSIS
     Route: 042
     Dates: start: 201112, end: 201505

REACTIONS (3)
  - Immune reconstitution inflammatory syndrome [Recovered/Resolved with Sequelae]
  - Depression [Unknown]
  - Progressive multifocal leukoencephalopathy [Recovered/Resolved with Sequelae]
